FAERS Safety Report 6074876-9 (Version None)
Quarter: 2009Q1

REPORT INFORMATION
  Report Type: 
  Country: None (occurrence: None)
  Receive Date: 20090212
  Receipt Date: 20090209
  Transmission Date: 20090719
  Serious: Yes (Other)
  Sender: FDA-Public Use
  Company Number: US-BRISTOL-MYERS SQUIBB COMPANY-14499180

PATIENT
  Age: 55 Year
  Sex: Male

DRUGS (1)
  1. AVALIDE [Suspect]
     Indication: BLOOD PRESSURE
     Dosage: IN 2007, CHANGED TO 1 TAB 3 TIMES A DAY.
     Dates: start: 20060101

REACTIONS (4)
  - ASTHENIA [None]
  - BACK PAIN [None]
  - LOSS OF CONSCIOUSNESS [None]
  - MEDICATION ERROR [None]
